FAERS Safety Report 9092604 (Version 1)
Quarter: 2013Q1

REPORT INFORMATION
  Report Type: Spontaneous
  Country: JP (occurrence: JP)
  Receive Date: 20130201
  Receipt Date: 20130201
  Transmission Date: 20140127
  Serious: Yes (Other)
  Sender: FDA-Public Use
  Company Number: JP-009507513-1301JPN014106

PATIENT
  Age: 66 Year
  Sex: Female

DRUGS (3)
  1. PEGINTRON [Suspect]
     Dosage: UNK
     Route: 058
  2. REBETOL [Suspect]
     Route: 048
  3. TELAVIC [Suspect]
     Indication: HEPATITIS C
     Dosage: 2250 MG, QD
     Route: 048
     Dates: start: 20130110, end: 20130112

REACTIONS (1)
  - Erythema [Recovered/Resolved]
